FAERS Safety Report 15104394 (Version 2)
Quarter: 2018Q3

REPORT INFORMATION
  Report Type: Report from Study
  Country: IT (occurrence: IT)
  Receive Date: 20180703
  Receipt Date: 20180925
  Transmission Date: 20181010
  Serious: Yes (Hospitalization)
  Sender: FDA-Public Use
  Company Number: IT-PFIZER INC-2018267689

PATIENT
  Age: 24 Year
  Sex: Male

DRUGS (2)
  1. XANAX [Suspect]
     Active Substance: ALPRAZOLAM
     Indication: ANXIETY
     Dosage: 50 DF SINGLE (0.25 MG 50 TABLETS)
     Route: 048
     Dates: start: 20180504, end: 20180504
  2. ENTUMIN [Concomitant]
     Active Substance: CLOTHIAPINE
     Dosage: 10 GTT, UNK
     Route: 048

REACTIONS (2)
  - Intentional overdose [Recovered/Resolved]
  - Drug abuse [Recovered/Resolved]

NARRATIVE: CASE EVENT DATE: 20180504
